FAERS Safety Report 18291686 (Version 3)
Quarter: 2021Q4

REPORT INFORMATION
  Report Type: Spontaneous
  Country: IN (occurrence: IN)
  Receive Date: 20200921
  Receipt Date: 20211215
  Transmission Date: 20220303
  Serious: Yes (Death)
  Sender: FDA-Public Use
  Company Number: IN-PFIZER INC-2020069634

PATIENT
  Age: 71 Year
  Sex: Male

DRUGS (1)
  1. SUTENT [Suspect]
     Active Substance: SUNITINIB MALATE
     Indication: Gastrointestinal stromal tumour
     Dosage: 50 MG, 1X/DAY
     Route: 048
     Dates: start: 20200211

REACTIONS (8)
  - Second primary malignancy [Fatal]
  - Bladder cancer [Fatal]
  - Heart rate decreased [Fatal]
  - Anoxia [Fatal]
  - Blood pressure decreased [Fatal]
  - Abdominal distension [Fatal]
  - Abdominal pain upper [Fatal]
  - Neoplasm recurrence [Unknown]
